FAERS Safety Report 7431102-3 (Version None)
Quarter: 2011Q2

REPORT INFORMATION
  Report Type: 
  Country: None (occurrence: None)
  Receive Date: 20110421
  Receipt Date: 20110413
  Transmission Date: 20111010
  Serious: No
  Sender: FDA-Public Use
  Company Number: JP-B.I. PHARMACEUTICALS,INC./RIDGEFIELD-2011-BP-03072NB

PATIENT
  Sex: Male
  Weight: 52 kg

DRUGS (4)
  1. SPIRIVA [Suspect]
     Indication: BRONCHITIS CHRONIC
     Dosage: 5 MCG
     Route: 055
     Dates: start: 20101214
  2. KIPRES [Concomitant]
     Indication: BRONCHITIS CHRONIC
     Dosage: 10 MG
     Route: 048
  3. MCODYNE [Concomitant]
     Indication: BRONCHITIS CHRONIC
     Dosage: 3 G
     Route: 048
  4. UNIPHYL LA [Concomitant]
     Indication: BRONCHITIS CHRONIC
     Dosage: 200 MG
     Route: 048

REACTIONS (1)
  - BRONCHITIS [None]
